FAERS Safety Report 8418589-4 (Version None)
Quarter: 2012Q2

REPORT INFORMATION
  Report Type: 
  Country: None (occurrence: None)
  Receive Date: 20120607
  Receipt Date: 20120530
  Transmission Date: 20120825
  Serious: Yes (Hospitalization, Other)
  Sender: FDA-Public Use
  Company Number: BE-JNJFOC-20100305050

PATIENT
  Sex: Male

DRUGS (6)
  1. NSAID [Suspect]
     Indication: ILL-DEFINED DISORDER
  2. AMEN [Concomitant]
     Indication: HYPERTENSION
  3. MARCUMAR [Suspect]
     Indication: ANTIPHOSPHOLIPID SYNDROME
     Dates: start: 20081201
  4. INFLIXIMAB [Suspect]
     Indication: CROHN'S DISEASE
     Route: 042
     Dates: start: 20100201
  5. AMLODIPINE [Concomitant]
  6. RAMIPRIL [Suspect]
     Indication: RENAL FAILURE
     Dates: start: 20081201

REACTIONS (4)
  - RENAL TUBULAR NECROSIS [None]
  - GLOMERULONEPHRITIS [None]
  - HENOCH-SCHONLEIN PURPURA [None]
  - RENAL FAILURE ACUTE [None]
